FAERS Safety Report 9390729 (Version 1)
Quarter: 2013Q3

REPORT INFORMATION
  Report Type: Spontaneous
  Country: US (occurrence: None)
  Receive Date: 20130705
  Receipt Date: 20130705
  Transmission Date: 20140515
  Serious: No
  Sender: FDA-Public Use
  Company Number: None

PATIENT
  Age: 59 Year
  Sex: Female
  Weight: 103.42 kg

DRUGS (1)
  1. CLOPIDOGREL [Suspect]
     Dosage: 75 MG TAB ONE DAILY ORALLY
     Route: 048

REACTIONS (1)
  - Epistaxis [None]
